FAERS Safety Report 13331442 (Version 1)
Quarter: 2017Q1

REPORT INFORMATION
  Report Type: Spontaneous
  Country: US (occurrence: US)
  Receive Date: 20170314
  Receipt Date: 20170314
  Transmission Date: 20170428
  Serious: Yes (Disabling)
  Sender: FDA-Public Use
  Company Number: None

PATIENT
  Age: 33 Year
  Sex: Female
  Weight: 66.15 kg

DRUGS (1)
  1. GABAPENTIN. [Suspect]
     Active Substance: GABAPENTIN
     Indication: SEIZURE
     Dosage: ?          QUANTITY:1 CAPSULE(S);?
     Route: 048
     Dates: start: 20080101, end: 20170314

REACTIONS (5)
  - Dyspepsia [None]
  - Drug ineffective [None]
  - Sinusitis [None]
  - Anxiety [None]
  - Alopecia [None]

NARRATIVE: CASE EVENT DATE: 20170101
